FAERS Safety Report 5810312-2 (Version None)
Quarter: 2008Q3

REPORT INFORMATION
  Report Type: 
  Country: None (occurrence: None)
  Receive Date: 20080715
  Receipt Date: 20080325
  Transmission Date: 20090109
  Serious: No
  Sender: FDA-Public Use
  Company Number: A0717334A

PATIENT
  Age: 19 Year
  Sex: Female

DRUGS (2)
  1. IMITREX [Suspect]
     Indication: MIGRAINE
     Route: 048
     Dates: start: 20080322, end: 20080322
  2. UNKNOWN [Concomitant]

REACTIONS (1)
  - THROAT TIGHTNESS [None]
